FAERS Safety Report 20480893 (Version 1)
Quarter: 2022Q1

REPORT INFORMATION
  Report Type: Spontaneous
  Country: US (occurrence: US)
  Receive Date: 20220216
  Receipt Date: 20220216
  Transmission Date: 20220424
  Serious: Yes (Death, Other)
  Sender: FDA-Public Use
  Company Number: US-OTSUKA-2021_020709

PATIENT
  Age: 6 Year
  Sex: Male

DRUGS (14)
  1. BUSULFAN [Suspect]
     Active Substance: BUSULFAN
     Indication: Bone marrow conditioning regimen
     Dosage: 40.8 MG (1.9 MG/KG)
     Route: 042
     Dates: start: 20210427
  2. BUSULFAN [Suspect]
     Active Substance: BUSULFAN
     Dosage: 40.8 MG (1.9 MG/KG)
     Route: 042
     Dates: start: 20210427
  3. BUSULFAN [Suspect]
     Active Substance: BUSULFAN
     Dosage: 37.8 MG (1.8 MG/KG)
     Route: 042
     Dates: start: 20210428
  4. BUSULFAN [Suspect]
     Active Substance: BUSULFAN
     Dosage: 40.8 MG (1.8 MG/KG)
     Route: 042
     Dates: start: 20210428
  5. BUSULFAN [Suspect]
     Active Substance: BUSULFAN
     Dosage: 40.8 MG (1.9 MG/KG)
     Route: 042
     Dates: start: 20210429
  6. BUSULFAN [Suspect]
     Active Substance: BUSULFAN
     Dosage: 40.8 MG (1.9 MG/KG)
     Route: 042
     Dates: start: 20210429
  7. BUSULFAN [Suspect]
     Active Substance: BUSULFAN
     Dosage: 40.8 MG (1.9 MG/KG)
     Route: 042
     Dates: start: 20210430
  8. BUSULFAN [Suspect]
     Active Substance: BUSULFAN
     Dosage: 40.8 MG (1.9 MG/KG)
     Route: 042
     Dates: start: 20210430
  9. CASPOFUNGIN [Concomitant]
     Active Substance: CASPOFUNGIN
     Indication: Product used for unknown indication
     Dosage: UNK
     Route: 065
     Dates: start: 20210515
  10. CEFEPIME [Concomitant]
     Active Substance: CEFEPIME HYDROCHLORIDE
     Indication: Product used for unknown indication
     Dosage: UNK
     Route: 065
     Dates: start: 20210512, end: 20210513
  11. VANCOMYCIN [Concomitant]
     Active Substance: VANCOMYCIN
     Indication: Product used for unknown indication
     Dosage: UNK
     Route: 065
     Dates: start: 20210512, end: 20210512
  12. VANCOMYCIN [Concomitant]
     Active Substance: VANCOMYCIN
     Dosage: UNK
     Route: 065
     Dates: start: 20210513
  13. DILAUDID [Concomitant]
     Active Substance: HYDROMORPHONE HYDROCHLORIDE
     Indication: Product used for unknown indication
     Dosage: UNK
     Route: 065
     Dates: start: 20210512, end: 20210520
  14. PROTONIX [Concomitant]
     Active Substance: PANTOPRAZOLE SODIUM
     Indication: Product used for unknown indication
     Dosage: UNK
     Route: 065
     Dates: start: 20210517, end: 20210520

REACTIONS (6)
  - Cardio-respiratory arrest [Fatal]
  - Pulmonary haemorrhage [Fatal]
  - Multiple organ dysfunction syndrome [Unknown]
  - Mucosal inflammation [Unknown]
  - Febrile neutropenia [Unknown]
  - Thrombocytopenia [Unknown]
